FAERS Safety Report 17544694 (Version 1)
Quarter: 2020Q1

REPORT INFORMATION
  Report Type: Spontaneous
  Country: FR (occurrence: FR)
  Receive Date: 20200316
  Receipt Date: 20200316
  Transmission Date: 20200409
  Serious: Yes (Life-Threatening)
  Sender: FDA-Public Use
  Company Number: FR-ACCORD-175773

PATIENT
  Age: 49 Year
  Sex: Female

DRUGS (7)
  1. ARIPIPRAZOLE. [Suspect]
     Active Substance: ARIPIPRAZOLE
     Indication: PRODUCT USED FOR UNKNOWN INDICATION
     Route: 048
     Dates: end: 20200207
  2. CARBAMAZEPINE. [Interacting]
     Active Substance: CARBAMAZEPINE
     Indication: BIPOLAR DISORDER
     Route: 048
     Dates: end: 20200207
  3. LORMETAZEPAM [Interacting]
     Active Substance: LORMETAZEPAM
     Indication: PRODUCT USED FOR UNKNOWN INDICATION
     Route: 048
     Dates: end: 20200207
  4. FLUOXETINE [Interacting]
     Active Substance: FLUOXETINE HYDROCHLORIDE
     Indication: PRODUCT USED FOR UNKNOWN INDICATION
     Route: 048
     Dates: end: 20200207
  5. DEPAMIDE [Interacting]
     Active Substance: VALPROMIDE
     Indication: BIPOLAR DISORDER
     Dosage: STRENGTH: 300 MG, GASTRO-RESISTANT FILM-COATED TABLET
     Route: 048
     Dates: start: 20200129, end: 20200207
  6. TERCIAN [Interacting]
     Active Substance: CYAMEMAZINE
     Indication: PRODUCT USED FOR UNKNOWN INDICATION
     Dosage: STRENGTH: 25 MG, SCORED COATED TABLET
     Route: 048
     Dates: end: 20200207
  7. THERALENE [Interacting]
     Active Substance: TRIMEPRAZINE
     Indication: PRODUCT USED FOR UNKNOWN INDICATION
     Dosage: STRENGTH: 4 PERCENT, ORAL SOLUTION IN DROPS
     Route: 048
     Dates: end: 20200207

REACTIONS (2)
  - Coma [Recovered/Resolved]
  - Drug interaction [Unknown]

NARRATIVE: CASE EVENT DATE: 20200207
